FAERS Safety Report 9013225 (Version 4)
Quarter: 2013Q2

REPORT INFORMATION
  Report Type: Spontaneous
  Country: US (occurrence: US)
  Receive Date: 20130115
  Receipt Date: 20130606
  Transmission Date: 20140414
  Serious: No
  Sender: FDA-Public Use
  Company Number: US-BIOGENIDEC-2013BI003126

PATIENT
  Age: 48 Year
  Sex: Female

DRUGS (2)
  1. AVONEX [Suspect]
     Indication: MULTIPLE SCLEROSIS
     Route: 030
  2. AVONEX [Suspect]
     Indication: MULTIPLE SCLEROSIS
     Route: 030
     Dates: start: 20121228, end: 20130201

REACTIONS (10)
  - Weight decreased [Not Recovered/Not Resolved]
  - Restlessness [Recovered/Resolved]
  - Crying [Recovered/Resolved]
  - Depression [Recovered/Resolved]
  - Suicidal ideation [Recovered/Resolved]
  - Asthenia [Unknown]
  - Rhinorrhoea [Unknown]
  - Depressed mood [Unknown]
  - Rash macular [Not Recovered/Not Resolved]
  - Neck pain [Recovered/Resolved]
